FAERS Safety Report 17485682 (Version 1)
Quarter: 2020Q1

REPORT INFORMATION
  Report Type: Report from Study
  Country: None (occurrence: DE)
  Receive Date: 20200302
  Receipt Date: 20200302
  Transmission Date: 20200409
  Serious: Yes (Death)
  Sender: FDA-Public Use
  Company Number: DE-ABBVIE-20K-062-3293283-00

PATIENT
  Age: 26 Year
  Sex: Male
  Weight: 85 kg

DRUGS (7)
  1. CLINDAMYCIN. [Concomitant]
     Active Substance: CLINDAMYCIN
     Indication: PRODUCT USED FOR UNKNOWN INDICATION
     Dates: start: 20190918, end: 20190920
  2. QUETIAPIN [Suspect]
     Active Substance: QUETIAPINE
     Indication: SCHIZOAFFECTIVE DISORDER
     Route: 048
     Dates: start: 20180824
  3. PROSPAN [Concomitant]
     Active Substance: IVY EXTRACT
     Indication: PRODUCT USED FOR UNKNOWN INDICATION
     Dosage: COUGH LIQUID
     Dates: start: 20190919, end: 20190924
  4. CLARITHROMYCIN. [Concomitant]
     Active Substance: CLARITHROMYCIN
     Indication: PRODUCT USED FOR UNKNOWN INDICATION
     Dates: start: 20190917, end: 20190917
  5. PANTOPRAZOL [Concomitant]
     Active Substance: PANTOPRAZOLE SODIUM
     Indication: PRODUCT USED FOR UNKNOWN INDICATION
     Dates: start: 20190917, end: 20190920
  6. MAVIRET [Suspect]
     Active Substance: GLECAPREVIR\PIBRENTASVIR
     Indication: CHRONIC HEPATITIS C
     Dosage: 100MG GLECAPREVIR/40MG PIBRENTASVIR, 3 TABLETS, ONCE DAILY
     Route: 048
     Dates: start: 20190725, end: 20190917
  7. MORPHINSULFAT ABZ [Suspect]
     Active Substance: MORPHINE SULFATE
     Indication: DRUG DEPENDENCE
     Route: 048
     Dates: start: 20180831

REACTIONS (4)
  - Poisoning [Fatal]
  - Fall [Fatal]
  - Urine alcohol test positive [Unknown]
  - Drug screen positive [Unknown]

NARRATIVE: CASE EVENT DATE: 20200221
